FAERS Safety Report 5840879-X (Version None)
Quarter: 2008Q3

REPORT INFORMATION
  Report Type: 
  Country: None (occurrence: None)
  Receive Date: 20080811
  Receipt Date: 20080722
  Transmission Date: 20090109
  Serious: No
  Sender: FDA-Public Use
  Company Number: US-BOEHRINGER INGELHEIM GMBH, GERMANY-2008-BP-11572BP

PATIENT
  Sex: Male

DRUGS (4)
  1. ZANTAC 150 [Suspect]
     Indication: DYSPEPSIA
     Route: 048
     Dates: start: 20080701
  2. ZETIA [Concomitant]
     Indication: BLOOD CHOLESTEROL INCREASED
     Dates: start: 20071001
  3. HIV MEDICATION [Concomitant]
     Indication: HIV INFECTION
     Dates: start: 20070201
  4. BLOOD PRESSURE MEDICATION [Concomitant]
     Indication: HYPERTENSION
     Dates: start: 20071001

REACTIONS (2)
  - PRURITUS [None]
  - SKIN EXFOLIATION [None]
